FAERS Safety Report 24275112 (Version 3)
Quarter: 2025Q2

REPORT INFORMATION
  Report Type: Spontaneous
  Country: US (occurrence: US)
  Receive Date: 20240902
  Receipt Date: 20250609
  Transmission Date: 20250717
  Serious: No
  Sender: ALEXION PHARMACEUTICALS
  Company Number: 2024A187833

PATIENT

DRUGS (1)
  1. AIRSUPRA [Suspect]
     Active Substance: ALBUTEROL SULFATE\BUDESONIDE

REACTIONS (6)
  - Cough [Unknown]
  - Visual impairment [Unknown]
  - Speech disorder [Unknown]
  - Device malfunction [Unknown]
  - Poor quality device used [Unknown]
  - Device dispensing error [Unknown]
